FAERS Safety Report 11870669 (Version 1)
Quarter: 2015Q4

REPORT INFORMATION
  Report Type: Spontaneous
  Country: US (occurrence: None)
  Receive Date: 20151224
  Receipt Date: 20151224
  Transmission Date: 20160305
  Serious: No
  Sender: FDA-Public Use
  Company Number: None

PATIENT
  Age: 53 Year
  Sex: Female

DRUGS (15)
  1. MECLIZINE [Concomitant]
     Active Substance: MECLIZINE\MECLIZINE HYDROCHLORIDE
  2. FERROUS SULFATE [Concomitant]
     Active Substance: FERROUS SULFATE\FERROUS SULFATE, DRIED
  3. CALCIUM CARBONATE/VITAMIN [Concomitant]
  4. LORATADINE. [Concomitant]
     Active Substance: LORATADINE
  5. TACROLIMUS. [Concomitant]
     Active Substance: TACROLIMUS
  6. ASCORBIC ACID. [Concomitant]
     Active Substance: ASCORBIC ACID
  7. GABAPENTIN. [Concomitant]
     Active Substance: GABAPENTIN
  8. WARFARIN [Concomitant]
     Active Substance: WARFARIN
  9. INSULIN LISPRO [Suspect]
     Active Substance: INSULIN LISPRO
     Indication: HYPERGLYCAEMIA
     Dosage: 4-5 UNITS
     Route: 058
     Dates: start: 20150908
  10. AMOXICILILN [Concomitant]
  11. ESOMEPRAZOLE [Concomitant]
     Active Substance: ESOMEPRAZOLE
  12. LEVOTHYROXINE. [Concomitant]
     Active Substance: LEVOTHYROXINE
  13. MAGNESIUM SULFATE. [Concomitant]
     Active Substance: MAGNESIUM SULFATE
  14. MYCOPHENOLATE [Concomitant]
     Active Substance: MYCOPHENOLIC ACID
  15. ROSUVASTATIN [Concomitant]
     Active Substance: ROSUVASTATIN

REACTIONS (4)
  - Confusional state [None]
  - Incorrect dose administered [None]
  - Treatment noncompliance [None]
  - Hypoglycaemia [None]

NARRATIVE: CASE EVENT DATE: 20150908
